FAERS Safety Report 6372961-5 (Version None)
Quarter: 2009Q3

REPORT INFORMATION
  Report Type: 
  Country: None (occurrence: None)
  Receive Date: 20090924
  Receipt Date: 20090209
  Transmission Date: 20100115
  Serious: Yes (Hospitalization, Other)
  Sender: FDA-Public Use
  Company Number: US-ASTRAZENECA-2008UW27663

PATIENT
  Age: 32 Year
  Sex: Male
  Weight: 68 kg

DRUGS (4)
  1. SEROQUEL [Suspect]
     Indication: BIPOLAR I DISORDER
     Dosage: 200 MG
     Route: 048
     Dates: start: 20080601, end: 20081101
  2. SEROQUEL [Suspect]
     Dosage: 200 MG
     Route: 048
  3. SEROQUEL [Suspect]
     Dosage: 200 MG
     Route: 048
  4. SEROQUEL [Suspect]
     Dosage: 200 MG
     Route: 048

REACTIONS (4)
  - CARDIAC FLUTTER [None]
  - DYSPNOEA [None]
  - ELECTROCARDIOGRAM QT PROLONGED [None]
  - INSOMNIA [None]
